FAERS Safety Report 25244040 (Version 2)
Quarter: 2025Q2

REPORT INFORMATION
  Report Type: Report from Study
  Country: US (occurrence: US)
  Receive Date: 20250428
  Receipt Date: 20250611
  Transmission Date: 20250717
  Serious: Yes (Other)
  Sender: UCB
  Company Number: US-UCBSA-2024064141

PATIENT
  Age: 7 Year
  Sex: Female
  Weight: 25 kg

DRUGS (17)
  1. FINTEPLA [Suspect]
     Active Substance: FENFLURAMINE
     Indication: Severe myoclonic epilepsy of infancy
     Dates: start: 20200624
  2. FINTEPLA [Suspect]
     Active Substance: FENFLURAMINE
     Dates: start: 20200728, end: 20210728
  3. FINTEPLA [Suspect]
     Active Substance: FENFLURAMINE
     Dosage: 1.6 MILLILITER, 2X/DAY (BID)
  4. FINTEPLA [Suspect]
     Active Substance: FENFLURAMINE
     Dosage: 1.4 MILLILITER, 2X/DAY (BID)
  5. FINTEPLA [Suspect]
     Active Substance: FENFLURAMINE
  6. FINTEPLA [Suspect]
     Active Substance: FENFLURAMINE
     Dosage: 1.8 MILLILITER, 2X/DAY (BID)
  7. DEPAKOTE [Concomitant]
     Active Substance: DIVALPROEX SODIUM
     Indication: Product used for unknown indication
  8. PHENOBARBITAL [Concomitant]
     Active Substance: PHENOBARBITAL
     Indication: Product used for unknown indication
     Dosage: 5 MILLILITER, 2X/DAY (BID)
  9. PHENOBARBITAL [Concomitant]
     Active Substance: PHENOBARBITAL
  10. PHENOBARBITAL [Concomitant]
     Active Substance: PHENOBARBITAL
     Dosage: 3.5 MILLILITER, 2X/DAY (BID)
     Dates: end: 20220721
  11. KEPPRA [Concomitant]
     Active Substance: LEVETIRACETAM
     Indication: Product used for unknown indication
  12. ONFI [Concomitant]
     Active Substance: CLOBAZAM
     Indication: Product used for unknown indication
     Dosage: 1 MILLILITER, 3X/DAY (TID)
  13. EPIDIOLEX [Concomitant]
     Active Substance: CANNABIDIOL
     Indication: Product used for unknown indication
     Dosage: 1.4 MILLILITER, 2X/DAY (BID)
  14. HERBALS\TETRAHYDROCANNABINOL UNSPECIFIED [Concomitant]
     Active Substance: HERBALS\TETRAHYDROCANNABINOL UNSPECIFIED
     Indication: Product used for unknown indication
  15. STIRIPENTOL [Concomitant]
     Active Substance: STIRIPENTOL
     Indication: Product used for unknown indication
     Dosage: 500 MILLIGRAM, 2X/DAY (BID)
  16. STIRIPENTOL [Concomitant]
     Active Substance: STIRIPENTOL
     Dosage: 750 MILLIGRAM, 2X/DAY (BID)
  17. CLONIDINE [Concomitant]
     Active Substance: CLONIDINE
     Indication: Sleep disorder

REACTIONS (3)
  - Pulmonary arterial pressure increased [Not Recovered/Not Resolved]
  - Pulmonary artery dilatation [Unknown]
  - Muscular weakness [Not Recovered/Not Resolved]

NARRATIVE: CASE EVENT DATE: 20231004
